FAERS Safety Report 5224765-4 (Version None)
Quarter: 2007Q1

REPORT INFORMATION
  Report Type: 
  Country: None (occurrence: None)
  Receive Date: 20070129
  Receipt Date: 20070129
  Transmission Date: 20070707
  Serious: Yes (Life-Threatening)
  Sender: FDA-Public Use
  Company Number: None

PATIENT
  Age: 36 Year
  Sex: Male
  Weight: 77.1115 kg

DRUGS (1)
  1. ACCUTANE [Suspect]
     Indication: ACNE
     Dates: start: 19951002, end: 19960601

REACTIONS (5)
  - CEREBROVASCULAR ACCIDENT [None]
  - HEAD INJURY [None]
  - HEADACHE [None]
  - MYOCARDIAL INFARCTION [None]
  - SUICIDE ATTEMPT [None]
